FAERS Safety Report 5932587-1 (Version None)
Quarter: 2008Q4

REPORT INFORMATION
  Report Type: 
  Country: None (occurrence: None)
  Receive Date: 20081023
  Receipt Date: 20060705
  Transmission Date: 20090506
  Serious: Yes (Life-Threatening, Other)
  Sender: FDA-Public Use
  Company Number: 2006AL002220

PATIENT
  Age: 48 Year
  Sex: Female

DRUGS (6)
  1. CITALOPRAM HYDROBROMIDE [Suspect]
     Indication: DEPRESSION
     Dosage: 20 MG;QD;PO
     Route: 048
     Dates: start: 20030529
  2. DICLOFENAC SODIUM [Suspect]
     Indication: ARTHRALGIA
     Dosage: 50 MG;TID;PO
     Route: 048
     Dates: start: 20050131, end: 20060605
  3. FEXOFENADINE [Concomitant]
  4. FLIXONASE [Concomitant]
  5. KAPAKE INSTS [Concomitant]
  6. SIMVASTATIN [Concomitant]

REACTIONS (1)
  - GASTRIC ULCER PERFORATION [None]
